FAERS Safety Report 24222664 (Version 1)
Quarter: 2024Q3

REPORT INFORMATION
  Report Type: Spontaneous
  Country: US (occurrence: None)
  Receive Date: 20240816
  Receipt Date: 20240816
  Transmission Date: 20241017
  Serious: No
  Sender: Public
  Company Number: None

PATIENT
  Age: 61 Year
  Sex: Female
  Weight: 70.3 kg

DRUGS (4)
  1. VESICARE [Suspect]
     Active Substance: SOLIFENACIN SUCCINATE
  2. SANCTURA [Suspect]
     Active Substance: TROSPIUM CHLORIDE
  3. TOVIAZ [Suspect]
     Active Substance: FESOTERODINE FUMARATE
  4. VIBEGRON [Suspect]
     Active Substance: VIBEGRON

REACTIONS (6)
  - Blood pressure increased [None]
  - Dizziness [None]
  - Nausea [None]
  - Headache [None]
  - Heart rate increased [None]
  - Therapy non-responder [None]

NARRATIVE: CASE EVENT DATE: 20230321
